FAERS Safety Report 7073684-X (Version None)
Quarter: 2010Q4

REPORT INFORMATION
  Report Type: 
  Country: None (occurrence: None)
  Receive Date: 20101029
  Receipt Date: 20100913
  Transmission Date: 20110411
  Serious: No
  Sender: FDA-Public Use
  Company Number: A0873217A

PATIENT
  Age: 89 Year
  Sex: Female

DRUGS (5)
  1. ADVAIR DISKUS 100/50 [Suspect]
     Indication: LUNG DISORDER
     Dosage: 1PUFF TWICE PER DAY
     Route: 055
     Dates: start: 20100727
  2. ALBUTEROL [Concomitant]
  3. LISINOPRIL [Concomitant]
  4. LEXAPRO [Concomitant]
  5. SYNTHROID [Concomitant]

REACTIONS (3)
  - BLOOD PRESSURE INCREASED [None]
  - DYSPHONIA [None]
  - INCREASED BRONCHIAL SECRETION [None]
